FAERS Safety Report 8615933-X (Version None)
Quarter: 2012Q3

REPORT INFORMATION
  Report Type: 
  Country: None (occurrence: None)
  Receive Date: 20120823
  Receipt Date: 20120816
  Transmission Date: 20120928
  Serious: Yes (Other)
  Sender: FDA-Public Use
  Company Number: GB-GLAXOSMITHKLINE-B0814861A

PATIENT
  Sex: Male

DRUGS (2)
  1. LAMICTAL [Suspect]
     Indication: PRODUCT USED FOR UNKNOWN INDICATION
     Dosage: 150MG TWICE PER DAY
     Route: 048
     Dates: start: 20110901
  2. ASPIRIN [Concomitant]
     Dosage: 75MG PER DAY

REACTIONS (4)
  - ATRIAL FIBRILLATION [None]
  - TACHYCARDIA [None]
  - PALPITATIONS [None]
  - CHEST DISCOMFORT [None]
